FAERS Safety Report 5940310-X (Version None)
Quarter: 2008Q4

REPORT INFORMATION
  Report Type: 
  Country: None (occurrence: None)
  Receive Date: 20081104
  Receipt Date: 20081029
  Transmission Date: 20090506
  Serious: Yes (Other)
  Sender: FDA-Public Use
  Company Number: A0754645A

PATIENT
  Sex: Female

DRUGS (1)
  1. STELAZINE [Suspect]
     Indication: DRUG USE FOR UNKNOWN INDICATION
     Dates: end: 19950101

REACTIONS (2)
  - PARALYSIS [None]
  - TREMOR [None]
